FAERS Safety Report 6088302-7 (Version None)
Quarter: 2009Q1

REPORT INFORMATION
  Report Type: 
  Country: None (occurrence: None)
  Receive Date: 20090219
  Receipt Date: 20090126
  Transmission Date: 20090719
  Serious: Yes (Other)
  Sender: FDA-Public Use
  Company Number: 176338

PATIENT
  Age: 35 Year
  Sex: Female

DRUGS (5)
  1. VINCRISTINE [Suspect]
     Indication: B-CELL LYMPHOMA
  2. DOXORUBICIN HCL [Suspect]
     Indication: B-CELL LYMPHOMA
  3. (RITUXIMAB) [Suspect]
     Indication: B-CELL LYMPHOMA
     Dosage: 375 MG/M2,
  4. CYCLOPHOSPHAMIDE [Suspect]
     Indication: B-CELL LYMPHOMA
  5. PREDNISONE [Suspect]
     Indication: B-CELL LYMPHOMA

REACTIONS (13)
  - ACTIVATED PARTIAL THROMBOPLASTIN TIME PROLONGED [None]
  - BLOOD BILIRUBIN INCREASED [None]
  - EPSTEIN-BARR VIRUS TEST POSITIVE [None]
  - HEPATOSPLENOMEGALY [None]
  - HYPERTRIGLYCERIDAEMIA [None]
  - HYPOCOAGULABLE STATE [None]
  - HYPOGAMMAGLOBULINAEMIA [None]
  - LUNG CONSOLIDATION [None]
  - LYMPHOPROLIFERATIVE DISORDER [None]
  - NODULE [None]
  - PANCYTOPENIA [None]
  - RENAL DISORDER [None]
  - SERUM FERRITIN INCREASED [None]
